FAERS Safety Report 8773979 (Version 1)
Quarter: 2012Q4

REPORT INFORMATION
  Report Type: 
  Country: DE (occurrence: DE)
  Receive Date: 20120904
  Receipt Date: 20120904
  Transmission Date: 20130627
  Serious: Yes (Hospitalization)
  Sender: FDA-Public Use
  Company Number: DE-ELI_LILLY_AND_COMPANY-DE201208008289

PATIENT
  Sex: Female

DRUGS (3)
  1. CYMBALTA [Suspect]
  2. QUETIAPINE [Concomitant]
  3. BENZODIAZEPINE RELATED DRUGS [Concomitant]

REACTIONS (6)
  - Poisoning [Unknown]
  - Chromaturia [Unknown]
  - Pyrexia [Unknown]
  - Confusional state [Unknown]
  - Dry skin [Unknown]
  - Memory impairment [Unknown]
